FAERS Safety Report 13887813 (Version 1)
Quarter: 2017Q3

REPORT INFORMATION
  Report Type: Spontaneous
  Country: US (occurrence: US)
  Receive Date: 20170821
  Receipt Date: 20170821
  Transmission Date: 20171127
  Serious: No
  Sender: FDA-Public Use
  Company Number: US-ACTELION-A-NJ2017-158231

PATIENT
  Age: 65 Year
  Sex: Female

DRUGS (3)
  1. UPTRAVI [Suspect]
     Active Substance: SELEXIPAG
     Indication: PULMONARY HYPERTENSION
     Dosage: 800 MCG, BID
     Route: 048
  2. REVATIO [Concomitant]
     Active Substance: SILDENAFIL CITRATE
  3. KLOR-CON [Concomitant]
     Active Substance: POTASSIUM CHLORIDE

REACTIONS (10)
  - Headache [Unknown]
  - Dyspnoea [Unknown]
  - Myalgia [Unknown]
  - Dysphagia [Unknown]
  - Malaise [Unknown]
  - Dyspepsia [Unknown]
  - Abdominal discomfort [Unknown]
  - Eructation [Unknown]
  - Pain in extremity [Unknown]
  - Influenza like illness [Unknown]
